FAERS Safety Report 6040280-2 (Version None)
Quarter: 2009Q1

REPORT INFORMATION
  Report Type: 
  Country: None (occurrence: None)
  Receive Date: 20090116
  Receipt Date: 20080421
  Transmission Date: 20090719
  Serious: No
  Sender: FDA-Public Use
  Company Number: US-BRISTOL-MYERS SQUIBB COMPANY-14066799

PATIENT
  Age: 18 Year
  Sex: Female

DRUGS (4)
  1. ABILIFY [Suspect]
     Indication: BIPOLAR DISORDER
     Dosage: 23-JAN-08,10MG/WK.INCREASED TO 15MG ON 29-JAN-2008.
     Route: 048
     Dates: start: 20080129
  2. LEVOXINE [Concomitant]
  3. HALDOL [Concomitant]
  4. THORAZINE [Concomitant]

REACTIONS (1)
  - DRUG EXPOSURE VIA BREAST MILK [None]
